FAERS Safety Report 17192201 (Version 1)
Quarter: 2019Q4

REPORT INFORMATION
  Report Type: Report from Study
  Country: PL (occurrence: PL)
  Receive Date: 20191223
  Receipt Date: 20191223
  Transmission Date: 20200122
  Serious: Yes (Other)
  Sender: FDA-Public Use
  Company Number: PL-CELGENEUS-POL-20191207263

PATIENT
  Age: 75 Year
  Sex: Male
  Weight: 85 kg

DRUGS (2)
  1. NAB-PACLITAXEL [Suspect]
     Active Substance: PACLITAXEL
     Indication: NON-SMALL CELL LUNG CANCER METASTATIC
     Route: 041
  2. PEMBROLIZUMAB (MK-3475) [Suspect]
     Active Substance: PEMBROLIZUMAB
     Indication: NON-SMALL CELL LUNG CANCER METASTATIC
     Route: 065

REACTIONS (1)
  - Atrial fibrillation [Unknown]

NARRATIVE: CASE EVENT DATE: 20191206
